FAERS Safety Report 11348436 (Version 1)
Quarter: 2015Q3

REPORT INFORMATION
  Report Type: Spontaneous
  Country: NZ (occurrence: NZ)
  Receive Date: 20150806
  Receipt Date: 20150806
  Transmission Date: 20151125
  Serious: Yes (Other)
  Sender: FDA-Public Use
  Company Number: PHHY2015NZ091859

PATIENT
  Age: 65 Year
  Sex: Male

DRUGS (4)
  1. METFORMIN [Suspect]
     Active Substance: METFORMIN HYDROCHLORIDE
     Indication: PRODUCT USED FOR UNKNOWN INDICATION
     Dosage: 500 MG, BID
     Route: 065
  2. METOPROLOL [Suspect]
     Active Substance: METOPROLOL
     Indication: PRODUCT USED FOR UNKNOWN INDICATION
     Dosage: 47.5 MG, QD
     Route: 065
  3. OMEPRAZOLE. [Suspect]
     Active Substance: OMEPRAZOLE
     Indication: PRODUCT USED FOR UNKNOWN INDICATION
     Dosage: 20 MG, QD
     Route: 065
  4. ATORVASTATIN [Suspect]
     Active Substance: ATORVASTATIN
     Indication: PRODUCT USED FOR UNKNOWN INDICATION
     Dosage: 10 MG, QD
     Route: 065

REACTIONS (11)
  - Anaemia [Unknown]
  - Metastases to the mediastinum [Unknown]
  - Metastases to bone [Unknown]
  - Thyroid gland scan abnormal [Unknown]
  - Lymphadenopathy [Unknown]
  - Metastatic malignant melanoma [Unknown]
  - Metastases to muscle [Unknown]
  - Metastases to peritoneum [Unknown]
  - Occult blood positive [Unknown]
  - Metastases to lung [Unknown]
  - Metastases to skin [Unknown]

NARRATIVE: CASE EVENT DATE: 20150616
